FAERS Safety Report 9309594 (Version 1)
Quarter: 2013Q2

REPORT INFORMATION
  Report Type: Spontaneous
  Country: US (occurrence: US)
  Receive Date: 20130525
  Receipt Date: 20130525
  Transmission Date: 20140414
  Serious: No
  Sender: FDA-Public Use
  Company Number: US-BRISTOL-MYERS SQUIBB COMPANY-17483033

PATIENT
  Age: 47 Year
  Sex: Male

DRUGS (1)
  1. BYDUREON [Suspect]
     Dosage: LONG ACTING RELEASE 2MG
     Route: 058
     Dates: start: 201301

REACTIONS (1)
  - Injection site mass [Not Recovered/Not Resolved]
